FAERS Safety Report 4928810-2 (Version None)
Quarter: 2006Q1

REPORT INFORMATION
  Report Type: 
  Country: None (occurrence: None)
  Receive Date: 20060227
  Receipt Date: 20060227
  Transmission Date: 20060701
  Serious: Yes (Disabling, Other)
  Sender: FDA-Public Use
  Company Number: None

PATIENT
  Age: 45 Year
  Sex: Female
  Weight: 62.5964 kg

DRUGS (2)
  1. LEVAQUIN [Suspect]
     Indication: CHRONIC SINUSITIS
     Dosage: 2 DAILY PO
     Route: 048
     Dates: start: 20051020, end: 20051108
  2. LEVAQUIN [Suspect]
     Indication: CHRONIC SINUSITIS
     Dosage: 2 DAILY PO
     Route: 048
     Dates: start: 20060215, end: 20060219

REACTIONS (3)
  - ARTHRALGIA [None]
  - NECK PAIN [None]
  - SHOULDER PAIN [None]
